FAERS Safety Report 9296079 (Version 1)
Quarter: 2013Q2

REPORT INFORMATION
  Report Type: Other
  Country: DK (occurrence: DK)
  Receive Date: 20130517
  Receipt Date: 20130517
  Transmission Date: 20140414
  Serious: Yes (Death, Congenital Anomaly)
  Sender: FDA-Public Use
  Company Number: DK-WATSON-2011-24359

PATIENT
  Age: 4 Month
  Sex: Male

DRUGS (2)
  1. LAMOTRIGINE (UNKNOWN) [Suspect]
     Indication: EPILEPSY
     Dosage: 750 UNK, UNK
     Route: 048
  2. KEPPRA [Suspect]
     Indication: EPILEPSY
     Dosage: 750 MG, BID (750MG FILMOVERTRUNKE TABL)
     Route: 048

REACTIONS (6)
  - Congenital genital malformation [Not Recovered/Not Resolved]
  - Foetal exposure during pregnancy [Recovered/Resolved]
  - Potter^s syndrome [Fatal]
  - Caudal regression syndrome [Fatal]
  - Oligohydramnios [Not Recovered/Not Resolved]
  - Renal aplasia [Not Recovered/Not Resolved]
